FAERS Safety Report 20565180 (Version 1)
Quarter: 2022Q1

REPORT INFORMATION
  Report Type: Spontaneous
  Country: IT (occurrence: IT)
  Receive Date: 20220308
  Receipt Date: 20220308
  Transmission Date: 20220424
  Serious: Yes (Life-Threatening, Other)
  Sender: FDA-Public Use
  Company Number: None

PATIENT
  Age: 66 Year
  Sex: Male
  Weight: 100 kg

DRUGS (1)
  1. PACLITAXEL [Suspect]
     Active Substance: PACLITAXEL
     Indication: Lung neoplasm malignant
     Dosage: 175 MILLIGRAM/SQ. METER, CYCLE
     Route: 042
     Dates: start: 20211217, end: 20220107

REACTIONS (3)
  - Cardiac arrest [Recovered/Resolved with Sequelae]
  - Hypersensitivity [Recovered/Resolved with Sequelae]
  - Anaphylactic shock [Recovered/Resolved with Sequelae]

NARRATIVE: CASE EVENT DATE: 20220107
